FAERS Safety Report 6022917-7 (Version None)
Quarter: 2008Q4

REPORT INFORMATION
  Report Type: 
  Country: None (occurrence: None)
  Receive Date: 20081224
  Receipt Date: 20081224
  Transmission Date: 20090506
  Serious: Yes (Other)
  Sender: FDA-Public Use
  Company Number: None

PATIENT
  Age: 36 Year
  Sex: Male
  Weight: 86.1834 kg

DRUGS (2)
  1. CLARITHROMYCIN [Suspect]
     Indication: BRONCHITIS
     Dosage: 1 PILL EVERY 8 HOURS PO
     Route: 048
     Dates: start: 20081215, end: 20081216
  2. CLARITHROMYCIN [Suspect]
     Indication: SINUSITIS
     Dosage: 1 PILL EVERY 8 HOURS PO
     Route: 048
     Dates: start: 20081215, end: 20081216

REACTIONS (6)
  - MALAISE [None]
  - NAUSEA [None]
  - PSYCHOTIC DISORDER [None]
  - TACHYPHRENIA [None]
  - THINKING ABNORMAL [None]
  - VOMITING [None]
